FAERS Safety Report 6216956-0 (Version None)
Quarter: 2009Q2

REPORT INFORMATION
  Report Type: 
  Country: None (occurrence: None)
  Receive Date: 20090604
  Receipt Date: 20090519
  Transmission Date: 20091009
  Serious: Yes (Death)
  Sender: FDA-Public Use
  Company Number: ADE # 09-070

PATIENT
  Sex: Female

DRUGS (8)
  1. CLOZAPINE [Suspect]
     Indication: SCHIZOPHRENIA
     Dosage: 600 MG DAILY
  2. RISPERDAL CONSTA [Concomitant]
  3. LUVOX [Concomitant]
  4. KLONOPIN [Concomitant]
  5. PRISTIG [Concomitant]
  6. ANAFRANIL [Concomitant]
  7. METOPROLOL SUCCINATE [Concomitant]
  8. PREVACID [Concomitant]

REACTIONS (1)
  - DEATH [None]
